FAERS Safety Report 7397678-X (Version None)
Quarter: 2011Q2

REPORT INFORMATION
  Report Type: 
  Country: None (occurrence: None)
  Receive Date: 20110406
  Receipt Date: 20110404
  Transmission Date: 20111010
  Serious: Yes (Life-Threatening, Hospitalization)
  Sender: FDA-Public Use
  Company Number: JP-ABBOTT-10P-087-0691266-00

PATIENT
  Age: 82 Year
  Sex: Male

DRUGS (6)
  1. LEUPLIN SR FOR INJECTION 11.25 MG [Suspect]
     Indication: PROSTATE CANCER STAGE III
     Route: 058
     Dates: start: 20070904, end: 20080812
  2. SUNRYTHM [Concomitant]
     Indication: ARRHYTHMIA
     Dosage: DAILY DOSE: 100MG
     Route: 048
     Dates: end: 20080812
  3. LASIX [Concomitant]
     Indication: CARDIAC FAILURE
     Dosage: DAILY DOSE: 20MG
     Route: 048
     Dates: end: 20080812
  4. DIGOXIN [Concomitant]
     Indication: CARDIAC FAILURE
     Dosage: DAILY DOSE: 0.125MG
     Route: 048
     Dates: end: 20050812
  5. ITOROL [Concomitant]
     Indication: CARDIAC FAILURE
     Dosage: DAILY DOSE: 40MG
     Route: 048
     Dates: end: 20080812
  6. ZYLORIC [Concomitant]
     Indication: HYPERURICAEMIA
     Dosage: DAILY DOSE: 100MG
     Route: 048
     Dates: end: 20080812

REACTIONS (1)
  - CARDIAC FAILURE [None]
